FAERS Safety Report 9542793 (Version 1)
Quarter: 2013Q3

REPORT INFORMATION
  Report Type: Spontaneous
  Country: US (occurrence: US)
  Receive Date: 20130923
  Receipt Date: 20130923
  Transmission Date: 20140515
  Serious: No
  Sender: FDA-Public Use
  Company Number: US-PFIZER INC-2013271926

PATIENT
  Age: 64 Year
  Sex: Female
  Weight: 64.85 kg

DRUGS (7)
  1. LYRICA [Suspect]
     Indication: NEURALGIA
     Dosage: 50 MG, 3X/DAY
  2. LYRICA [Suspect]
     Dosage: 75 MG, 3X/DAY
  3. VITAMIN D [Concomitant]
     Indication: MALABSORPTION
     Dosage: UNK
  4. ALLOPURINOL [Concomitant]
     Indication: NEPHROLITHIASIS
     Dosage: UNK
  5. VITAMIN B12 [Concomitant]
     Dosage: UNK
  6. TRICOR [Concomitant]
     Dosage: UNK
  7. NEXIUM [Concomitant]
     Dosage: UNK

REACTIONS (4)
  - Blood triglycerides increased [Unknown]
  - Drug ineffective [Unknown]
  - Pain in extremity [Unknown]
  - Pain [Unknown]
